FAERS Safety Report 8269827-2 (Version None)
Quarter: 2012Q2

REPORT INFORMATION
  Report Type: 
  Country: None (occurrence: None)
  Receive Date: 20120405
  Receipt Date: 20120403
  Transmission Date: 20120825
  Serious: Yes (Other)
  Sender: FDA-Public Use
  Company Number: ADR-2011-11203

PATIENT
  Sex: Female

DRUGS (1)
  1. LIORESAL [Suspect]
     Indication: MUSCLE SPASTICITY
     Dosage: DAILY,INTRATH
     Route: 037

REACTIONS (5)
  - HYPOTONIA [None]
  - CONVULSION [None]
  - HYPOTENSION [None]
  - RESPIRATION ABNORMAL [None]
  - MIOSIS [None]
